FAERS Safety Report 7124469-7 (Version None)
Quarter: 2010Q4

REPORT INFORMATION
  Report Type: 
  Country: None (occurrence: None)
  Receive Date: 20101126
  Receipt Date: 20101117
  Transmission Date: 20110411
  Serious: Yes (Hospitalization)
  Sender: FDA-Public Use
  Company Number: ES-ELI_LILLY_AND_COMPANY-ES201011004993

PATIENT
  Sex: Female

DRUGS (5)
  1. FORTEO [Suspect]
     Indication: OSTEOPOROSIS
     Dosage: 20 UG, DAILY (1/D)
     Route: 058
     Dates: start: 20101007
  2. ZALDIAR [Concomitant]
     Indication: PAIN
     Dosage: 3 D/F, DAILY (1/D)
     Route: 048
  3. DEZACOR [Concomitant]
     Dosage: 0.5 D/F, DAILY (1/D)
     Route: 048
  4. ARTEDIL [Concomitant]
     Indication: HYPERTENSION
     Dosage: 1 D/F, DAILY (1/D)
     Route: 048
  5. SEGURIL [Concomitant]
     Dosage: 2 D/F, DAILY (1/D)
     Route: 048

REACTIONS (2)
  - ARTHRALGIA [None]
  - MOBILITY DECREASED [None]
